FAERS Safety Report 8850576 (Version 2)
Quarter: 2013Q1

REPORT INFORMATION
  Report Type: Spontaneous
  Country: US (occurrence: US)
  Receive Date: 20121019
  Receipt Date: 20130107
  Transmission Date: 20140127
  Serious: Yes (Hospitalization)
  Sender: FDA-Public Use
  Company Number: US-B.I. PHARMACEUTICALS,INC./RIDGEFIELD-2012-BP-25500BP

PATIENT
  Sex: Male
  Weight: 88 kg

DRUGS (9)
  1. PRADAXA [Suspect]
     Indication: ATRIAL FIBRILLATION
     Dosage: 300 MG
     Route: 048
     Dates: start: 201103
  2. PRADAXA [Suspect]
     Indication: SICK SINUS SYNDROME
  3. ASA [Concomitant]
     Dosage: 81 MG
  4. MULTAQ [Concomitant]
     Dosage: 800 MG
  5. ENALAPRIL [Concomitant]
     Dosage: 5 MG
  6. LOPRESSOR [Concomitant]
     Dosage: 50 MG
  7. VYTORIN [Concomitant]
  8. MVI [Concomitant]
  9. ZOCOR [Concomitant]

REACTIONS (2)
  - Haemorrhage [Recovered/Resolved]
  - Lower gastrointestinal haemorrhage [Unknown]
